FAERS Safety Report 6778095 (Version 1)
Quarter: 2020Q3

REPORT INFORMATION
  Report Type: Report from Study
  Country: US (occurrence: US)
  Receive Date: 20081003
  Receipt Date: 20081003
  Transmission Date: 20201104
  Serious: Yes (Other)
  Sender: FDA-Public Use
  Company Number: US-ALLERGAN-0811991US

PATIENT

DRUGS (7)
  1. KETOROLAC TROMETHAMINE. [Suspect]
     Active Substance: KETOROLAC TROMETHAMINE
     Indication: PREOPERATIVE CARE
     Dosage: 4 GTT, UNK
     Route: 047
  2. ZYMAR [Suspect]
     Active Substance: GATIFLOXACIN
     Dosage: UNK, Q 15 MINS
     Route: 047
  3. ZYMAR [Suspect]
     Active Substance: GATIFLOXACIN
     Indication: PROPHYLAXIS
     Dosage: UNK, QID
     Route: 047
  4. ZYMAR [Suspect]
     Active Substance: GATIFLOXACIN
     Dosage: UNK, QID
     Route: 047
  5. PREDNISOLONE ACETATE. [Suspect]
     Active Substance: PREDNISOLONE ACETATE
     Indication: POSTOPERATIVE CARE
     Dosage: UNK, QID
     Route: 047
  6. POLYVINYL ALCOHOL [Suspect]
     Active Substance: POLYVINYL ALCOHOL
     Indication: PREOPERATIVE CARE
     Dosage: UNK, QID
     Route: 047
  7. POLYVINYL ALCOHOL [Suspect]
     Active Substance: POLYVINYL ALCOHOL
     Indication: POSTOPERATIVE CARE
     Dosage: UNK, QID
     Route: 047

REACTIONS (1)
  - Endophthalmitis [Unknown]
